FAERS Safety Report 15889858 (Version 1)
Quarter: 2019Q1

REPORT INFORMATION
  Report Type: Spontaneous
  Country: US (occurrence: US)
  Receive Date: 20190130
  Receipt Date: 20190130
  Transmission Date: 20190417
  Serious: Yes (Life-Threatening)
  Sender: FDA-Public Use
  Company Number: None

PATIENT
  Age: 11 Year
  Sex: Female
  Weight: 44.1 kg

DRUGS (6)
  1. EPIDIOLEX [Concomitant]
     Active Substance: CANNABIDIOL
  2. LAMOTRIGINE. [Concomitant]
     Active Substance: LAMOTRIGINE
  3. DEPAKOTE [Concomitant]
     Active Substance: DIVALPROEX SODIUM
  4. ONFI [Concomitant]
     Active Substance: CLOBAZAM
  5. CLOBAZAM. [Suspect]
     Active Substance: CLOBAZAM
     Indication: EPILEPSY
     Dosage: ?          QUANTITY:2 TABLET(S);?
     Route: 048
     Dates: start: 20181007, end: 20190128
  6. LEVOCARNTINE [Concomitant]

REACTIONS (4)
  - Product substitution issue [None]
  - Insomnia [None]
  - Epilepsy [None]
  - Quality of life decreased [None]

NARRATIVE: CASE EVENT DATE: 20181007
